FAERS Safety Report 14937962 (Version 1)
Quarter: 2018Q2

REPORT INFORMATION
  Report Type: Spontaneous
  Country: CH (occurrence: CH)
  Receive Date: 20180525
  Receipt Date: 20180525
  Transmission Date: 20180711
  Serious: Yes (Other)
  Sender: FDA-Public Use
  Company Number: CH-TEVA-2018-CH-894677

PATIENT
  Age: 46 Year
  Sex: Male

DRUGS (5)
  1. AMOXICILLIN W/CLAVULANIC ACID [Suspect]
     Active Substance: AMOXICILLIN\CLAVULANIC ACID
     Indication: NASOPHARYNGITIS
     Route: 065
  2. GEMCITABINE [Concomitant]
     Active Substance: GEMCITABINE\GEMCITABINE HYDROCHLORIDE
     Indication: NASOPHARYNGEAL CANCER
     Route: 065
  3. AMOXICILLIN W/CLAVULANIC ACID [Suspect]
     Active Substance: AMOXICILLIN\CLAVULANIC ACID
     Indication: NASAL CONGESTION
  4. PEMBROLIZUMAB. [Suspect]
     Active Substance: PEMBROLIZUMAB
     Indication: NASOPHARYNGEAL CANCER
     Route: 065
     Dates: start: 201601
  5. DOCETAXEL. [Concomitant]
     Active Substance: DOCETAXEL
     Indication: NASOPHARYNGEAL CANCER
     Route: 065

REACTIONS (8)
  - Nasal congestion [Recovering/Resolving]
  - Eye irritation [Recovering/Resolving]
  - Eyelid oedema [Recovering/Resolving]
  - Dry eye [Recovering/Resolving]
  - Drug eruption [Recovering/Resolving]
  - Nasopharyngitis [Recovering/Resolving]
  - Sialoadenitis [Unknown]
  - Lacrimation increased [Recovering/Resolving]
